FAERS Safety Report 23634238 (Version 2)
Quarter: 2025Q2

REPORT INFORMATION
  Report Type: Report from Study
  Country: US (occurrence: US)
  Receive Date: 20240314
  Receipt Date: 20250522
  Transmission Date: 20250717
  Serious: Yes (Death, Other)
  Sender: GILEAD
  Company Number: US-GILEAD-2024-0658231

PATIENT
  Age: 70 Year
  Sex: Male

DRUGS (4)
  1. AXICABTAGENE CILOLEUCEL [Suspect]
     Active Substance: AXICABTAGENE CILOLEUCEL
     Indication: Non-Hodgkin^s lymphoma
     Route: 042
  2. CYCLOPHOSPHAMIDE [Concomitant]
     Active Substance: CYCLOPHOSPHAMIDE
     Indication: Lymphodepletion
  3. FLUDARABINE [Concomitant]
     Active Substance: FLUDARABINE PHOSPHATE
     Indication: Lymphodepletion
  4. GEMCITABINE HYDROCHLORIDE\OXALIPLATIN\RITUXIMAB [Concomitant]
     Active Substance: GEMCITABINE HYDROCHLORIDE\OXALIPLATIN\RITUXIMAB
     Indication: Chemotherapy

REACTIONS (2)
  - Death [Fatal]
  - Genitourinary tract neoplasm [Unknown]
